FAERS Safety Report 9915989 (Version 1)
Quarter: 2014Q1

REPORT INFORMATION
  Report Type: Spontaneous
  Country: US (occurrence: None)
  Receive Date: 20140220
  Receipt Date: 20140220
  Transmission Date: 20141002
  Serious: Yes (Hospitalization)
  Sender: FDA-Public Use
  Company Number: None

PATIENT
  Age: 57 Year
  Sex: Male
  Weight: 96.5 kg

DRUGS (2)
  1. BENDAMUSTINE HYDROCHLORIDE [Suspect]
  2. RITUXIMAB (MOAB C2B8 ANTI CD20, CHIMERIC) [Suspect]

REACTIONS (5)
  - Syncope [None]
  - Dizziness [None]
  - Loss of consciousness [None]
  - Head injury [None]
  - Fall [None]
